FAERS Safety Report 14026973 (Version 4)
Quarter: 2019Q3

REPORT INFORMATION
  Report Type: Spontaneous
  Country: US (occurrence: US)
  Receive Date: 20170929
  Receipt Date: 20190828
  Transmission Date: 20191004
  Serious: Yes (Hospitalization)
  Sender: FDA-Public Use
  Company Number: US-B.I. PHARMACEUTICALS,INC./RIDGEFIELD-2017-BI-052148

PATIENT
  Age: 68 Year
  Sex: Female
  Weight: 104.33 kg

DRUGS (14)
  1. LISINOPRIL. [Concomitant]
     Active Substance: LISINOPRIL
     Indication: PRODUCT USED FOR UNKNOWN INDICATION
     Dosage: 1 TABLET (20 MG TOTAL) BY MOUTH 2 (TWO) TIMES A DAY
     Route: 048
     Dates: start: 20130202, end: 20150908
  2. PRADAXA [Suspect]
     Active Substance: DABIGATRAN ETEXILATE MESYLATE
     Indication: ATRIAL FIBRILLATION
     Route: 048
     Dates: start: 20130510, end: 20141130
  3. COLACE [Concomitant]
     Active Substance: DOCUSATE SODIUM
     Indication: PRODUCT USED FOR UNKNOWN INDICATION
     Dosage: 100 MG BY MOUTH 2 (TWO) TIMES A DAY
     Route: 048
  4. LEVOTHYROXINE. [Concomitant]
     Active Substance: LEVOTHYROXINE
     Indication: PRODUCT USED FOR UNKNOWN INDICATION
     Dosage: 1 TABLET (125 MCG TOTAL) BY MOUTH ONCE DAILY
     Route: 048
     Dates: start: 20131023
  5. ZOCOR [Concomitant]
     Active Substance: SIMVASTATIN
     Indication: PRODUCT USED FOR UNKNOWN INDICATION
     Dosage: 1 TABLET (10 MG TOTAL) BY MOUTH DAILY EVERY NIGHT
     Route: 048
     Dates: start: 20131023
  6. NEURONTIN [Concomitant]
     Active Substance: GABAPENTIN
     Indication: PRODUCT USED FOR UNKNOWN INDICATION
     Dosage: ONE CAPSULE BY MOUTH THREE TIMES A DAY
     Route: 048
     Dates: start: 20130202
  7. LASIX [Concomitant]
     Active Substance: FUROSEMIDE
     Indication: PRODUCT USED FOR UNKNOWN INDICATION
     Dosage: 1 TABLET (20 MG TOTAL) BY MOUTH ONCE DAILY
     Route: 048
     Dates: start: 20140517, end: 20150813
  8. TYLENOL [Concomitant]
     Active Substance: ACETAMINOPHEN
     Indication: PRODUCT USED FOR UNKNOWN INDICATION
     Route: 065
  9. LOPRESSOR [Concomitant]
     Active Substance: METOPROLOL TARTRATE
     Indication: PRODUCT USED FOR UNKNOWN INDICATION
     Dosage: 0.5 TABLETS (25  MG TOTAL)  BY MOUTH 2 (TWO) TIMES A DAY
     Route: 048
     Dates: start: 20141120, end: 20151120
  10. PRILOSEC [Concomitant]
     Active Substance: OMEPRAZOLE MAGNESIUM
     Indication: PRODUCT USED FOR UNKNOWN INDICATION
     Dosage: 1 CAPSULE (20 MG TOTAL) BY MOUTH 2 (TWO) TIMES A DAY
     Route: 048
     Dates: start: 20131023
  11. CARDIZEM CD [Concomitant]
     Active Substance: DILTIAZEM HYDROCHLORIDE
     Indication: PRODUCT USED FOR UNKNOWN INDICATION
     Dosage: 1 CAPSULE (180 MG TOTAL) BY MOUTH ONCE DAILY
     Route: 048
     Dates: start: 20141120
  12. NEURONTIN [Concomitant]
     Active Substance: GABAPENTIN
     Dosage: 1 CAPSULE (100 MG TOTAL) BY MOUTH 2 (TWO) TIMES A DAY
     Route: 048
     Dates: start: 20141120, end: 20150816
  13. ASPIRIN EC [Concomitant]
     Active Substance: ASPIRIN
     Indication: PRODUCT USED FOR UNKNOWN INDICATION
     Dosage: EC TABLET?81 MG BY MOUTH ONCE DAILY
     Route: 048
  14. ZOFRAN [Concomitant]
     Active Substance: ONDANSETRON HYDROCHLORIDE
     Indication: PRODUCT USED FOR UNKNOWN INDICATION
     Dosage: 4 MG BY MOUTH ONCE EVERY 4 (FOUR) HOURS AS NEEDED
     Route: 048

REACTIONS (2)
  - Blood loss anaemia [Unknown]
  - Lower gastrointestinal haemorrhage [Unknown]

NARRATIVE: CASE EVENT DATE: 20141130
